FAERS Safety Report 19230541 (Version 1)
Quarter: 2021Q2

REPORT INFORMATION
  Report Type: Spontaneous
  Country: US (occurrence: US)
  Receive Date: 20210507
  Receipt Date: 20210507
  Transmission Date: 20210717
  Serious: Yes (Hospitalization)
  Sender: FDA-Public Use
  Company Number: US-BOIRON INC.-2021BOR00056

PATIENT
  Sex: Male

DRUGS (1)
  1. RHINALLERGY (ALLIUM CEPA 5C HPUS\AMBROSIA ARTEMISIAFOLIA 5C HPUS\EUPHRASIA OFFICINALIS 5C HPUS\HISTAMINUM HYDROCHLORICUM 9C HPUS\SABADILLA 5C HPUS\SOLIDAGO VIRGAUREA 5C HPUS) (HOMEOPATHIC) [Suspect]
     Active Substance: HOMEOPATHICS
     Indication: MULTIPLE ALLERGIES
     Dosage: 1 TABLET FOLLOWED BY A 2ND TABLET 50 MINUTES LATER
     Dates: start: 20210426, end: 20210426

REACTIONS (2)
  - Heart rate increased [Not Recovered/Not Resolved]
  - Heart rate irregular [Unknown]

NARRATIVE: CASE EVENT DATE: 202104
